FAERS Safety Report 5110721-3 (Version None)
Quarter: 2006Q3

REPORT INFORMATION
  Report Type: 
  Country: None (occurrence: None)
  Receive Date: 20060919
  Receipt Date: 20060913
  Transmission Date: 20061208
  Serious: Yes (Hospitalization)
  Sender: FDA-Public Use
  Company Number: TAP2006Q01555

PATIENT
  Age: 27 Day
  Sex: Male

DRUGS (1)
  1. PREVACID [Suspect]
     Indication: OESOPHAGITIS
     Dosage: 7.5 MG, 2 IN 1 D, ORAL
     Route: 048
     Dates: start: 20060908, end: 20060913

REACTIONS (3)
  - BACTERIAL INFECTION [None]
  - SEPSIS [None]
  - THROMBOCYTOPENIA [None]
